FAERS Safety Report 17425874 (Version 3)
Quarter: 2020Q3

REPORT INFORMATION
  Report Type: Spontaneous
  Country: NZ (occurrence: NZ)
  Receive Date: 20200218
  Receipt Date: 20200804
  Transmission Date: 20201102
  Serious: Yes (Death, Hospitalization, Other)
  Sender: FDA-Public Use
  Company Number: NZ-SA-2020SA037846

PATIENT

DRUGS (1)
  1. PRALUENT [Suspect]
     Active Substance: ALIROCUMAB
     Dosage: 150 MG, QOW
     Route: 058

REACTIONS (5)
  - Abdominal distension [Fatal]
  - Abdominal pain [Fatal]
  - Adenocarcinoma gastric [Fatal]
  - Faeces discoloured [Fatal]
  - Decreased appetite [Fatal]
